FAERS Safety Report 4717668-2 (Version None)
Quarter: 2005Q3

REPORT INFORMATION
  Report Type: 
  Country: None (occurrence: None)
  Receive Date: 20050713
  Receipt Date: 20050316
  Transmission Date: 20060218
  Serious: Yes (Other)
  Sender: FDA-Public Use
  Company Number: 399102

PATIENT
  Sex: 0

DRUGS (5)
  1. FUZEON [Suspect]
     Indication: HIV INFECTION
  2. KALETRA [Concomitant]
  3. RETROVIR [Concomitant]
  4. AZT [Concomitant]
  5. LAMIVUDINE [Concomitant]

REACTIONS (1)
  - CD4 LYMPHOCYTES DECREASED [None]
